FAERS Safety Report 5336290-0 (Version None)
Quarter: 2007Q2

REPORT INFORMATION
  Report Type: 
  Country: None (occurrence: None)
  Receive Date: 20070522
  Receipt Date: 20070514
  Transmission Date: 20071010
  Serious: Yes (Death, Hospitalization)
  Sender: FDA-Public Use
  Company Number: 200714176GDDC

PATIENT
  Age: 62 Year
  Sex: Male
  Weight: 60 kg

DRUGS (2)
  1. CISPLATIN [Suspect]
     Indication: NEOPLASM MALIGNANT
     Dosage: CYC IV
     Route: 042
     Dates: start: 20041229, end: 20041229
  2. RADIOTHERAPY [Suspect]
     Indication: NEOPLASM MALIGNANT

REACTIONS (5)
  - DYSPHASIA [None]
  - HAEMORRHAGE [None]
  - MUCOSAL INFLAMMATION [None]
  - TUMOUR HAEMORRHAGE [None]
  - TUMOUR ULCERATION [None]
